FAERS Safety Report 5837107-8 (Version None)
Quarter: 2008Q3

REPORT INFORMATION
  Report Type: 
  Country: None (occurrence: None)
  Receive Date: 20080807
  Receipt Date: 20080728
  Transmission Date: 20090109
  Serious: Yes (Hospitalization, Disabling, Other)
  Sender: FDA-Public Use
  Company Number: US-MERCK-0705USA01551

PATIENT
  Age: 63 Year
  Sex: Female

DRUGS (5)
  1. FOSAMAX [Suspect]
     Indication: OSTEOPOROSIS
     Route: 048
     Dates: start: 19960101
  2. FOSAMAX [Suspect]
     Route: 048
     Dates: start: 20001001, end: 20020401
  3. FOSAMAX [Suspect]
     Route: 048
     Dates: start: 20020501, end: 20060501
  4. FOSAMAX [Suspect]
     Route: 048
     Dates: start: 20050301, end: 20050401
  5. FOSAMAX PLUS D [Suspect]
     Route: 048

REACTIONS (30)
  - ADVERSE EVENT [None]
  - AGGRESSION [None]
  - ALCOHOL ABUSE [None]
  - ANGIOPATHY [None]
  - ASTHMA [None]
  - CONCUSSION [None]
  - DIARRHOEA [None]
  - DIZZINESS [None]
  - FALL [None]
  - GASTROOESOPHAGEAL REFLUX DISEASE [None]
  - GINGIVITIS [None]
  - HEADACHE [None]
  - IMMUNE SYSTEM DISORDER [None]
  - INCONTINENCE [None]
  - INFECTION [None]
  - LUNG DISORDER [None]
  - MAJOR DEPRESSION [None]
  - MALAISE [None]
  - ORAL HERPES [None]
  - PANCYTOPENIA [None]
  - PLATELET COUNT DECREASED [None]
  - PNEUMONIA [None]
  - RESORPTION BONE INCREASED [None]
  - SUICIDAL IDEATION [None]
  - TENSION [None]
  - THROMBOSIS [None]
  - TOOTH DISORDER [None]
  - TOOTH FRACTURE [None]
  - WEIGHT DECREASED [None]
  - WRIST FRACTURE [None]
